FAERS Safety Report 6188101-1 (Version None)
Quarter: 2009Q2

REPORT INFORMATION
  Report Type: 
  Country: None (occurrence: None)
  Receive Date: 20090511
  Receipt Date: 20090428
  Transmission Date: 20091009
  Serious: Yes (Death, Life-Threatening)
  Sender: FDA-Public Use
  Company Number: 000690

PATIENT
  Sex: Male
  Weight: 84 kg

DRUGS (4)
  1. ALPROSTADIL [Suspect]
     Dates: start: 20090411, end: 20090421
  2. PENTOXIFXLLIN [Concomitant]
  3. NICOTINIC ACID [Concomitant]
  4. VITAMIN A+E /00354001/ [Concomitant]

REACTIONS (4)
  - ACUTE MYOCARDIAL INFARCTION [None]
  - LOSS OF CONSCIOUSNESS [None]
  - RESPIRATORY ARREST [None]
  - VENTRICULAR FIBRILLATION [None]
